FAERS Safety Report 12287709 (Version 1)
Quarter: 2016Q2

REPORT INFORMATION
  Report Type: Report from Study
  Country: US (occurrence: US)
  Receive Date: 20160420
  Receipt Date: 20160420
  Transmission Date: 20160815
  Serious: Yes (Other)
  Sender: FDA-Public Use
  Company Number: ADR-2015-00977

PATIENT
  Age: 58 Year
  Sex: Male

DRUGS (8)
  1. COMPOUNDED BACLOFEN [Suspect]
     Active Substance: BACLOFEN
     Dosage: 50.3 MCG/DAY
     Route: 037
     Dates: start: 20150422
  2. BUPIVACAINE. [Suspect]
     Active Substance: BUPIVACAINE
     Dosage: 10.781 MG/DAY
     Route: 037
     Dates: start: 20150402, end: 20150422
  3. CLONIDINE. [Suspect]
     Active Substance: CLONIDINE
     Dosage: 68 MCG/DAY
     Route: 037
     Dates: start: 20150422
  4. SUFENTA [Suspect]
     Active Substance: SUFENTANIL CITRATE
     Dosage: 17 MCG/DAY
     Route: 037
     Dates: start: 20150422
  5. CLONIDINE. [Suspect]
     Active Substance: CLONIDINE
     Dosage: 799.3 MCG/DAY
     Route: 037
     Dates: start: 20150402, end: 20150422
  6. COMPOUNDED BACLOFEN [Suspect]
     Active Substance: BACLOFEN
     Dosage: 591.6 MCG/DAY
     Route: 037
     Dates: start: 20150402, end: 20150422
  7. SUFENTA [Suspect]
     Active Substance: SUFENTANIL CITRATE
     Dosage: 199.82 MCG/DAY
     Route: 037
     Dates: start: 20150402, end: 20150422
  8. BUPIVACAINE. [Suspect]
     Active Substance: BUPIVACAINE
     Dosage: 0.917 MG/DAY
     Route: 037
     Dates: start: 20150422

REACTIONS (3)
  - Medical device site discharge [Recovered/Resolved]
  - Implant site infection [Recovered/Resolved]
  - Implant site pain [Recovered/Resolved]

NARRATIVE: CASE EVENT DATE: 20150419
